FAERS Safety Report 6691792-X (Version None)
Quarter: 2010Q2

REPORT INFORMATION
  Report Type: 
  Country: None (occurrence: None)
  Receive Date: 20100422
  Receipt Date: 20090616
  Transmission Date: 20101027
  Serious: No
  Sender: FDA-Public Use
  Company Number: US-ASTRAZENECA-2009UW15406

PATIENT
  Age: 74 Year
  Sex: Female

DRUGS (1)
  1. TOPROL-XL [Suspect]
     Indication: HYPERTENSION
     Route: 048
     Dates: start: 20080901

REACTIONS (6)
  - CARDIAC FLUTTER [None]
  - CHEST DISCOMFORT [None]
  - DEPRESSION [None]
  - MYALGIA [None]
  - OROPHARYNGEAL PAIN [None]
  - PYREXIA [None]
